FAERS Safety Report 24092058 (Version 5)
Quarter: 2025Q1

REPORT INFORMATION
  Report Type: Report from Study
  Country: JP (occurrence: JP)
  Receive Date: 20240715
  Receipt Date: 20250226
  Transmission Date: 20250408
  Serious: No
  Sender: EISAI
  Company Number: JP-Eisai-202404626_LEQ_P_1

PATIENT
  Age: 90 Year
  Sex: Female
  Weight: 54 kg

DRUGS (10)
  1. LEQEMBI [Suspect]
     Active Substance: LECANEMAB-IRMB
     Indication: Dementia Alzheimer^s type
     Dates: start: 20240708, end: 20241125
  2. LEQEMBI [Suspect]
     Active Substance: LECANEMAB-IRMB
     Dates: start: 20241223
  3. AMLODIPINE [Concomitant]
     Active Substance: AMLODIPINE BESYLATE
     Indication: Product used for unknown indication
  4. GALANTAMINE [Concomitant]
     Active Substance: GALANTAMINE
     Indication: Cognitive disorder
  5. ELDECALCITOL [Concomitant]
     Active Substance: ELDECALCITOL
     Indication: Prophylaxis
  6. DIETARY SUPPLEMENT\PROBIOTICS [Concomitant]
     Active Substance: DIETARY SUPPLEMENT\PROBIOTICS NOS
     Indication: Prophylaxis
  7. MIRABEGRON [Concomitant]
     Active Substance: MIRABEGRON
     Indication: Prophylaxis
  8. TSUMURA HOCHUEKKITO EXTRACT GRANULES FOR ETHICAL USE [Concomitant]
     Indication: Prophylaxis
  9. ACINON [Concomitant]
     Indication: Prophylaxis
  10. REBAMIPIDE [Concomitant]
     Active Substance: REBAMIPIDE
     Indication: Prophylaxis

REACTIONS (2)
  - Headache [Recovering/Resolving]
  - Infusion related reaction [Recovering/Resolving]

NARRATIVE: CASE EVENT DATE: 20240708
